FAERS Safety Report 7769190-7 (Version None)
Quarter: 2011Q3

REPORT INFORMATION
  Report Type: 
  Country: None (occurrence: None)
  Receive Date: 20110922
  Receipt Date: 20110914
  Transmission Date: 20111222
  Serious: Yes (Hospitalization, Other)
  Sender: FDA-Public Use
  Company Number: IT-ROCHE-729635

PATIENT
  Sex: Female
  Weight: 47 kg

DRUGS (28)
  1. CLOPIDOGREL [Concomitant]
     Dates: start: 20090115
  2. LANTHANUM CARBONATE [Concomitant]
     Dates: start: 20110507
  3. METHOXY POLYETHYLENE GLYCOL-EPOETIN BETA [Suspect]
     Dosage: LAST DOSE PRIOR TO SAE: 14 JANUARY 2011.
     Route: 042
  4. METHOXY POLYETHYLENE GLYCOL-EPOETIN BETA [Suspect]
     Dosage: LAST DOSE PRIOR TO SAE: 15 AUG 2011
     Route: 042
  5. LANSOPRAZOLE [Concomitant]
     Dates: start: 20060630
  6. PREDNISONE [Concomitant]
     Dates: start: 20100417
  7. ASPIRIN [Concomitant]
     Dates: start: 20091226
  8. SEVELAMER CARBONATE [Concomitant]
     Dates: start: 20110719
  9. ATORVASTATIN CALCIUM [Concomitant]
     Dates: start: 20100517
  10. TEMISARTAN [Concomitant]
     Dates: start: 20101203
  11. DIGOXIN [Concomitant]
     Dosage: TDD: 625 GU
     Dates: start: 20100702, end: 20101124
  12. IRON GLUCONATE [Concomitant]
     Dates: start: 20100915
  13. PARICALCITOL [Concomitant]
     Dosage: REPORTED AS PARACALCITOL
     Dates: start: 20100326
  14. PRAVASTATIN [Concomitant]
     Dates: start: 20110112
  15. RISEDRONIC ACID [Concomitant]
     Dates: start: 20090804
  16. ALLOPURINOL [Concomitant]
     Dates: start: 20110318
  17. METHOXY POLYETHYLENE GLYCOL-EPOETIN BETA [Suspect]
     Dosage: LAST DOSE PRIOR TO SAE:15 NOVEMBER 2010, DOSAGE FORM: PFS
     Route: 042
  18. SEVELAMER [Concomitant]
     Dates: start: 20090804
  19. CARVEDILOL [Concomitant]
     Dates: start: 20100531
  20. AMLODIPINE [Concomitant]
     Dates: start: 20101227
  21. TEMISARTAN [Concomitant]
     Dates: start: 20100122
  22. DARBEPOETIN ALFA [Suspect]
     Dosage: NURSE MISTAKE ON 15 DEC 2010, DARBEPOTIN ALFA (BATCH 1016812) WAS ADMINISTERED.
     Route: 065
     Dates: start: 20101215
  23. FUROSEMIDE [Concomitant]
     Dates: start: 20020630
  24. RISEDRONIC ACID [Concomitant]
     Dosage: TOTAL DOSE: 70 MG
     Dates: start: 20100122
  25. METOPROLOL TARTRATE [Concomitant]
     Dates: start: 20100702
  26. ACETAMINOPHEN [Concomitant]
     Dates: start: 20101006
  27. METHOXY POLYETHYLENE GLYCOL-EPOETIN BETA [Suspect]
     Dosage: LAST DOSE PRIOR TO SAE: 16 JUNE 2010, DOSAGE FORM: PFS
     Route: 042
     Dates: start: 20100414
  28. VERAPAMIL [Concomitant]

REACTIONS (4)
  - CHRONIC MYELOID LEUKAEMIA [None]
  - ANGINA PECTORIS [None]
  - MYOCARDIAL ISCHAEMIA [None]
  - MYOCARDIAL INFARCTION [None]
